APPROVED DRUG PRODUCT: NIZATIDINE
Active Ingredient: NIZATIDINE
Strength: 300MG
Dosage Form/Route: CAPSULE;ORAL
Application: A076178 | Product #002 | TE Code: AB
Applicant: EPIC PHARMA LLC
Approved: Jul 5, 2002 | RLD: No | RS: No | Type: RX